FAERS Safety Report 9764229 (Version 2)
Quarter: 2013Q4

REPORT INFORMATION
  Report Type: Spontaneous
  Country: DE (occurrence: DE)
  Receive Date: 20131216
  Receipt Date: 20131216
  Transmission Date: 20140711
  Serious: Yes (Hospitalization, Other)
  Sender: FDA-Public Use
  Company Number: DE-PFIZER INC-2013316005

PATIENT
  Age: 68 Year
  Sex: Female
  Weight: 83.6 kg

DRUGS (7)
  1. SUTENT [Suspect]
     Indication: RENAL CELL CARCINOMA
     Dosage: 37.5 MG, 1X/DAY
     Route: 048
     Dates: start: 20130911, end: 20130920
  2. HYDROCORTISON [Concomitant]
     Dosage: 15MG- 5MG- 0MG
  3. VIGANTOLETTEN [Concomitant]
     Dosage: 1000 IU, 1X/DAY
  4. RESTEX [Concomitant]
     Dosage: 100/25MG, TWICE DAILY (1-0-1)
  5. BELOC-ZOC MITE [Concomitant]
     Dosage: TWICE DAILY (1-0-1)
  6. VIANI DISKUS [Concomitant]
     Dosage: ONCE DAILY (1-0-0)
  7. CALCIUM ACETATE [Concomitant]
     Dosage: 950 MG, 2X/DAY (0-1-1)

REACTIONS (2)
  - Acute hepatic failure [Recovered/Resolved]
  - Bradycardia [Unknown]
